FAERS Safety Report 17954322 (Version 3)
Quarter: 2020Q3

REPORT INFORMATION
  Report Type: Spontaneous
  Country: US (occurrence: US)
  Receive Date: 20200629
  Receipt Date: 20200907
  Transmission Date: 20201103
  Serious: No
  Sender: FDA-Public Use
  Company Number: US-GLAXOSMITHKLINE-US2020AMR113001

PATIENT
  Sex: Female

DRUGS (5)
  1. ZEJULA [Suspect]
     Active Substance: NIRAPARIB
     Dosage: 100 MG, QD (AT BEDTIME)
     Route: 048
     Dates: start: 20200622
  2. ZEJULA [Suspect]
     Active Substance: NIRAPARIB
     Dosage: 200 MG, QD
     Dates: end: 20200714
  3. LYNPARZA [Suspect]
     Active Substance: OLAPARIB
     Indication: PRODUCT USED FOR UNKNOWN INDICATION
     Dosage: 150 MG, QD (MORNING)
  4. LYNPARZA [Suspect]
     Active Substance: OLAPARIB
     Dosage: UNK UNK, QD (150 MG AND 300 MG)
  5. ZEJULA [Suspect]
     Active Substance: NIRAPARIB
     Indication: OVARIAN CANCER
     Dosage: 200 MG, QD
     Route: 048
     Dates: start: 20200612

REACTIONS (9)
  - Hypertension [Unknown]
  - Feeling abnormal [Unknown]
  - Blood pressure increased [Unknown]
  - Nausea [Unknown]
  - Insomnia [Unknown]
  - Photosensitivity reaction [Unknown]
  - Headache [Unknown]
  - Heart rate increased [Unknown]
  - Palpitations [Unknown]
